FAERS Safety Report 5256999-7 (Version None)
Quarter: 2007Q1

REPORT INFORMATION
  Report Type: 
  Country: None (occurrence: None)
  Receive Date: 20070307
  Receipt Date: 20070108
  Transmission Date: 20070707
  Serious: No
  Sender: FDA-Public Use
  Company Number: US-GLAXOSMITHKLINE-A0634434A

PATIENT

DRUGS (1)
  1. CONTAC 12 HOUR [Suspect]

REACTIONS (1)
  - DRY THROAT [None]
